FAERS Safety Report 25273054 (Version 1)
Quarter: 2025Q2

REPORT INFORMATION
  Report Type: Spontaneous
  Country: US (occurrence: US)
  Receive Date: 20250506
  Receipt Date: 20250506
  Transmission Date: 20250717
  Serious: No
  Sender: NOBELPHARMA AMERICA, LLC
  Company Number: US-Nobelpharma America, LLC-NPA-2025-00709

PATIENT
  Age: 22 Year
  Sex: Male
  Weight: 62.2 kg

DRUGS (4)
  1. HYFTOR [Suspect]
     Active Substance: SIROLIMUS
     Indication: Angiofibroma
     Route: 061
     Dates: start: 20250227, end: 20250409
  2. AFINITOR [Concomitant]
     Active Substance: EVEROLIMUS
  3. CLONIDINE [Concomitant]
     Active Substance: CLONIDINE
  4. VITAMIN D [Concomitant]
     Active Substance: VITAMIN D NOS

REACTIONS (2)
  - Erythema [Unknown]
  - Dermatitis [Unknown]

NARRATIVE: CASE EVENT DATE: 20250409
